FAERS Safety Report 23813411 (Version 1)
Quarter: 2024Q2

REPORT INFORMATION
  Report Type: Spontaneous
  Country: IN (occurrence: IN)
  Receive Date: 20240503
  Receipt Date: 20240503
  Transmission Date: 20240716
  Serious: Yes (Hospitalization, Other)
  Sender: FDA-Public Use
  Company Number: IN-STRIDES ARCOLAB LIMITED-2024SP005061

PATIENT
  Age: 4 Year
  Sex: Male

DRUGS (6)
  1. METHOTREXATE [Suspect]
     Active Substance: METHOTREXATE
     Indication: Still^s disease
     Dosage: 15 MILLIGRAM/SQ. METER, ONCE A WEEK
     Route: 048
  2. FOLIC ACID [Suspect]
     Active Substance: FOLIC ACID
     Indication: Still^s disease
     Dosage: 5 MILLIGRAM, ONCE A WEEK
     Route: 065
  3. TOCILIZUMAB [Suspect]
     Active Substance: TOCILIZUMAB
     Indication: Still^s disease
     Dosage: UNK, EVERY 2 WEEKS
     Route: 065
  4. METHYLPREDNISOLONE [Suspect]
     Active Substance: METHYLPREDNISOLONE
     Indication: Evidence based treatment
     Dosage: UNK (HIGH DOSE)
     Route: 065
  5. CLOXACILLIN [Concomitant]
     Active Substance: CLOXACILLIN
     Indication: Evidence based treatment
     Dosage: UNK
     Route: 065
  6. PIPERACILLIN AND TAZOBACTAM [Concomitant]
     Active Substance: PIPERACILLIN SODIUM\TAZOBACTAM SODIUM
     Indication: Evidence based treatment
     Dosage: UNK
     Route: 065

REACTIONS (4)
  - Therapy non-responder [Unknown]
  - Achromobacter infection [Recovered/Resolved]
  - Sepsis [Recovered/Resolved]
  - Ear infection [Recovered/Resolved]
